FAERS Safety Report 10021102 (Version 1)
Quarter: 2014Q1

REPORT INFORMATION
  Report Type: Spontaneous
  Country: US (occurrence: None)
  Receive Date: 20140318
  Receipt Date: 20140318
  Transmission Date: 20141002
  Serious: Yes (Other)
  Sender: FDA-Public Use
  Company Number: None

PATIENT
  Age: 48 Year
  Sex: Female
  Weight: 120.2 kg

DRUGS (4)
  1. INVOKANA [Suspect]
     Indication: TYPE 2 DIABETES MELLITUS
     Dosage: 1 PO A DAY
     Route: 048
  2. CENTRUM MULTIPLE VITAMINS WITH MINERALS [Concomitant]
  3. D3 [Concomitant]
  4. 325 ASPIRIN [Concomitant]

REACTIONS (2)
  - Fungal infection [None]
  - Palpitations [None]
